FAERS Safety Report 4326388-8 (Version None)
Quarter: 2004Q1

REPORT INFORMATION
  Report Type: 
  Country: None (occurrence: None)
  Receive Date: 20040329
  Receipt Date: 20040329
  Transmission Date: 20041129
  Serious: Yes (Other)
  Sender: FDA-Public Use
  Company Number: None

PATIENT
  Sex: Female
  Weight: 66 kg

DRUGS (2)
  1. NAFCILLIN PWD FOR INJECTION [Suspect]
     Indication: INFECTION
     Dosage: 2 GM IV Q 4 HR
     Route: 042
     Dates: start: 20040307, end: 20040314
  2. HOME HTN MEDICATIONS [Concomitant]

REACTIONS (1)
  - RASH MACULAR [None]
